FAERS Safety Report 6924332-8 (Version None)
Quarter: 2010Q3

REPORT INFORMATION
  Report Type: 
  Country: None (occurrence: None)
  Receive Date: 20100811
  Receipt Date: 20100811
  Transmission Date: 20110219
  Serious: Yes (Death, Life-Threatening, Hospitalization, Other)
  Sender: FDA-Public Use
  Company Number: None

PATIENT
  Age: 60 Year
  Sex: Male
  Weight: 192.7787 kg

DRUGS (2)
  1. TREANDA [Suspect]
     Indication: B-CELL SMALL LYMPHOCYTIC LYMPHOMA
     Dosage: 334 MG DAY 1,2 Q 4 WKS IV BOLUS
     Route: 040
     Dates: start: 20100111, end: 20100317
  2. TREANDA [Suspect]
     Indication: CHRONIC LYMPHOCYTIC LEUKAEMIA REFRACTORY
     Dosage: 334 MG DAY 1,2 Q 4 WKS IV BOLUS
     Route: 040
     Dates: start: 20100111, end: 20100317

REACTIONS (3)
  - AUTOIMMUNE THROMBOCYTOPENIA [None]
  - BIOPSY BONE MARROW ABNORMAL [None]
  - BONE MARROW FAILURE [None]
